FAERS Safety Report 5897115-8 (Version None)
Quarter: 2008Q3

REPORT INFORMATION
  Report Type: 
  Country: None (occurrence: None)
  Receive Date: 20080924
  Receipt Date: 20080530
  Transmission Date: 20090109
  Serious: Yes (Other)
  Sender: FDA-Public Use
  Company Number: US-ASTRAZENECA-2008UW11040

PATIENT
  Sex: Female

DRUGS (3)
  1. SEROQUEL [Suspect]
     Dosage: 200-300 MG DAILY
     Route: 048
  2. PROVIGIL [Concomitant]
  3. TEGRETOL [Concomitant]

REACTIONS (2)
  - HALLUCINATION [None]
  - TARDIVE DYSKINESIA [None]
